FAERS Safety Report 20069346 (Version 2)
Quarter: 2021Q4

REPORT INFORMATION
  Report Type: Spontaneous
  Country: GB (occurrence: GB)
  Receive Date: 20211115
  Receipt Date: 20211216
  Transmission Date: 20220303
  Serious: Yes (Other)
  Sender: FDA-Public Use
  Company Number: None

PATIENT
  Age: 83 Year
  Sex: Female
  Weight: 70 kg

DRUGS (19)
  1. IBUPROFEN [Suspect]
     Active Substance: IBUPROFEN
     Indication: Product used for unknown indication
     Dosage: 400 MILLIGRAM
     Dates: start: 20211106
  2. IBUPROFEN [Suspect]
     Active Substance: IBUPROFEN
     Dosage: UNK, TID 1 TABLET
     Dates: start: 20211105
  3. ALLOPURINOL [Concomitant]
     Active Substance: ALLOPURINOL
     Dosage: UNK UNK, QD, ONE DAILY
     Dates: start: 20180406
  4. AMLODIPINE [Concomitant]
     Active Substance: AMLODIPINE BESYLATE
     Dosage: UNK UNK, QD, TAKE ONE DAILY
     Dates: start: 20201209
  5. CLOPIDOGREL [Concomitant]
     Active Substance: CLOPIDOGREL BISULFATE
     Dosage: UNK UNK, QD, TAKE ONE ONCE DAILY
     Dates: start: 20160707
  6. COLCHICINE [Concomitant]
     Active Substance: COLCHICINE
     Dosage: UNK UNK, QID, ONE UP TO 4 TIMES DAILY UNTIL SYMPTOMS RELIEVED
     Dates: start: 20190415
  7. EZETIMIBE [Concomitant]
     Active Substance: EZETIMIBE
     Dosage: UNK UNK, QD, TAKE ONE DAILY
     Dates: start: 20210330
  8. FERROUS FUMARATE [Concomitant]
     Active Substance: FERROUS FUMARATE
     Dosage: UNK, QD, EVERY DAY
     Dates: start: 20190423
  9. FOLIC ACID [Concomitant]
     Active Substance: FOLIC ACID
     Dosage: UNK UNK, QW, ONE PER WEEK
     Dates: start: 20190611
  10. FUROSEMIDE [Concomitant]
     Active Substance: FUROSEMIDE
     Dosage: UNK UNK, QD, TAKE ONE EACH MORNING
     Dates: start: 20210318
  11. POTASSIUM BICARBONATE\SODIUM ALGINATE [Concomitant]
     Active Substance: POTASSIUM BICARBONATE\SODIUM ALGINATE
     Dosage: 5ML TO 10 ML 4 TIMES A DAY
     Dates: start: 20210730
  12. IBUPROFEN [Concomitant]
     Active Substance: IBUPROFEN
     Dosage: 1 DOSAGE FORM, TID, TAKE ONE TABLET THREE TIMES A DAY. TAKE WITH OR...
     Dates: start: 20211105
  13. LACTULOSE [Concomitant]
     Active Substance: LACTULOSE
     Indication: Constipation
     Dosage: UNK UNK, BID 5-15ML TO BE TAKEN TWICE DAILY FOR CONSTIPATION
     Dates: start: 20211027
  14. LANSOPRAZOLE [Concomitant]
     Active Substance: LANSOPRAZOLE
     Dosage: UNK UNK, QD, TAKE ONE DAILY. TAKE ALONGSIDE ANTI-INFLAMMATOR
     Dates: start: 20210730
  15. LOSARTAN [Concomitant]
     Active Substance: LOSARTAN
     Dosage: UNK UNK, QD, TAKE ONE DAILY
     Dates: start: 20201216
  16. METFORMIN [Concomitant]
     Active Substance: METFORMIN HYDROCHLORIDE
     Dosage: 1 DOSAGE FORM, BID, ONE TO BE TAKEN TWICE DAILY
     Dates: start: 20210330
  17. METHOTREXATE [Concomitant]
     Active Substance: METHOTREXATE
     Dosage: UNK (8 WEEKLY. METHOTREXATE IS A HIGH-RISK DRUG. MAK...)
     Dates: start: 20210122
  18. SODIUM ALGINATE [Concomitant]
     Active Substance: SODIUM ALGINATE
     Dosage: UNK (5ML - 10ML 4 TIMES/DAY)
     Dates: start: 20170323
  19. CARBOMER [Concomitant]
     Active Substance: CARBOMER
     Dosage: UNK (ONE DROP 3-4 TIMES DAILY)
     Dates: start: 20190611

REACTIONS (4)
  - Blindness [Recovered/Resolved]
  - Vitreous floaters [Recovered/Resolved]
  - Photopsia [Recovered/Resolved]
  - Dizziness [Recovered/Resolved]

NARRATIVE: CASE EVENT DATE: 20211106
